FAERS Safety Report 6696656-3 (Version None)
Quarter: 2010Q2

REPORT INFORMATION
  Report Type: 
  Country: None (occurrence: None)
  Receive Date: 20100426
  Receipt Date: 20100414
  Transmission Date: 20101027
  Serious: Yes (Other)
  Sender: FDA-Public Use
  Company Number: GB-BAYER-201022451GPV

PATIENT
  Sex: Female

DRUGS (1)
  1. ULTRAVIST 150 [Suspect]
     Indication: DIAGNOSTIC PROCEDURE
     Route: 042
     Dates: start: 20100312, end: 20100312

REACTIONS (1)
  - LIVER FUNCTION TEST ABNORMAL [None]
